FAERS Safety Report 12487857 (Version 1)
Quarter: 2016Q2

REPORT INFORMATION
  Report Type: Spontaneous
  Country: US (occurrence: US)
  Receive Date: 20160622
  Receipt Date: 20160622
  Transmission Date: 20160815
  Serious: Yes (Death, Other)
  Sender: FDA-Public Use
  Company Number: US-UNITED THERAPEUTICS-UNT-2016-004781

PATIENT
  Sex: Male
  Weight: 126.98 kg

DRUGS (5)
  1. REVATIO [Concomitant]
     Active Substance: SILDENAFIL CITRATE
     Indication: PRODUCT USED FOR UNKNOWN INDICATION
  2. TYVASO [Suspect]
     Active Substance: TREPROSTINIL
     Dosage: UNK
  3. TERAZOSIN [Suspect]
     Active Substance: TERAZOSIN\TERAZOSIN HYDROCHLORIDE
     Indication: PRODUCT USED FOR UNKNOWN INDICATION
     Route: 065
  4. TYVASO [Suspect]
     Active Substance: TREPROSTINIL
     Indication: PULMONARY ARTERIAL HYPERTENSION
     Dosage: 18-54 ?G, QID
     Dates: start: 20160309
  5. TYVASO [Suspect]
     Active Substance: TREPROSTINIL
     Dosage: 18 ?G, QID

REACTIONS (16)
  - Death [Fatal]
  - Dyspnoea [Unknown]
  - Fall [Recovered/Resolved]
  - Cough [Unknown]
  - Presyncope [Unknown]
  - Skin abrasion [Recovered/Resolved]
  - Oxygen saturation decreased [Recovered/Resolved]
  - Blood potassium decreased [Unknown]
  - Dizziness [Unknown]
  - Syncope [Unknown]
  - Head injury [Recovered/Resolved]
  - Fluid retention [Unknown]
  - Oedema [Unknown]
  - Weight increased [Recovered/Resolved]
  - Hypotension [Recovering/Resolving]
  - Loss of consciousness [Recovered/Resolved]

NARRATIVE: CASE EVENT DATE: 2016
